FAERS Safety Report 11207512 (Version 1)
Quarter: 2015Q2

REPORT INFORMATION
  Report Type: Report from Study
  Country: US (occurrence: US)
  Receive Date: 20150622
  Receipt Date: 20150622
  Transmission Date: 20150821
  Serious: No
  Sender: FDA-Public Use
  Company Number: US-ABBVIE-15P-163-1393988-00

PATIENT
  Sex: Male

DRUGS (2)
  1. RIBAVIRIN. [Concomitant]
     Active Substance: RIBAVIRIN
     Indication: PRODUCT USED FOR UNKNOWN INDICATION
  2. VIEKIRA PAK [Suspect]
     Active Substance: DASABUVIR\OMBITASVIR\PARITAPREVIR\RITONAVIR
     Indication: HEPATITIS C
     Dosage: 2 PINK IN AM; 1 BEIGE IN THE AM AND PM
     Route: 048
     Dates: start: 201505

REACTIONS (5)
  - Nasopharyngitis [Unknown]
  - Lacrimation increased [Unknown]
  - Eye pruritus [Unknown]
  - Hypersensitivity [Unknown]
  - Rhinorrhoea [Unknown]
